FAERS Safety Report 6045315-9 (Version None)
Quarter: 2009Q1

REPORT INFORMATION
  Report Type: 
  Country: None (occurrence: None)
  Receive Date: 20090121
  Receipt Date: 20090114
  Transmission Date: 20090719
  Serious: Yes (Hospitalization)
  Sender: FDA-Public Use
  Company Number: PHHY2009FR01618

PATIENT
  Sex: Male

DRUGS (5)
  1. NEORAL [Suspect]
     Indication: STEM CELL TRANSPLANT
     Dosage: UNK
     Dates: start: 20080512
  2. VOLTAREN [Interacting]
     Indication: PERICARDITIS
     Dosage: UNK
     Route: 048
     Dates: start: 20080512
  3. DIGOXIN [Interacting]
     Indication: CARDIAC FAILURE
     Dosage: UNK
     Dates: start: 20080130, end: 20080616
  4. DIGOXIN [Interacting]
     Indication: RESPIRATORY FAILURE
  5. BACTRIM [Concomitant]
     Dosage: UNK
     Route: 042

REACTIONS (5)
  - BRADYCARDIA [None]
  - CARDIOACTIVE DRUG LEVEL INCREASED [None]
  - DRUG INTERACTION [None]
  - ELECTROCARDIOGRAM REPOLARISATION ABNORMALITY [None]
  - RENAL FAILURE ACUTE [None]
